FAERS Safety Report 7156151-4 (Version None)
Quarter: 2010Q4

REPORT INFORMATION
  Report Type: 
  Country: None (occurrence: None)
  Receive Date: 20101214
  Receipt Date: 20101209
  Transmission Date: 20110411
  Serious: Yes (Life-Threatening, Hospitalization, Other)
  Sender: FDA-Public Use
  Company Number: DE-NOVOPROD-318300

PATIENT
  Sex: Female
  Weight: 108 kg

DRUGS (9)
  1. VICTOZA [Suspect]
     Indication: TYPE 2 DIABETES MELLITUS
     Dosage: 1.2 MG, QD
     Route: 058
     Dates: start: 20100301, end: 20101101
  2. ATACAND [Concomitant]
     Dosage: 32 MG, QD
     Route: 048
  3. METFORMIN [Concomitant]
     Dosage: 1700 MG, QD
     Route: 048
  4. SIMVASTATIN [Concomitant]
     Dosage: 20 MG, QD
     Route: 048
  5. HCT [Concomitant]
     Dosage: 25 MG, QD
     Route: 048
  6. MOXONIDIN [Concomitant]
     Dosage: 0.6 MG, QD
     Route: 048
  7. AMLODINOVA [Concomitant]
     Dosage: 20 MG, QD
     Route: 048
  8. BEROTEC [Concomitant]
     Dosage: UNK
     Route: 055
  9. AEROMAX                            /00614601/ [Concomitant]
     Route: 055

REACTIONS (1)
  - THYROID CANCER [None]
